FAERS Safety Report 6373243-8 (Version None)
Quarter: 2009Q3

REPORT INFORMATION
  Report Type: 
  Country: None (occurrence: None)
  Receive Date: 20090924
  Receipt Date: 20090724
  Transmission Date: 20100115
  Serious: No
  Sender: FDA-Public Use
  Company Number: US-ASTRAZENECA-2009SE06103

PATIENT
  Age: 37 Year
  Sex: Female

DRUGS (2)
  1. SEROQUEL XR [Suspect]
     Route: 048
     Dates: start: 20090501
  2. SEROQUEL XR [Suspect]
     Route: 048
     Dates: start: 20090501

REACTIONS (4)
  - GASTROINTESTINAL PAIN [None]
  - LETHARGY [None]
  - SLEEP DISORDER [None]
  - TINNITUS [None]
